FAERS Safety Report 5102254-5 (Version None)
Quarter: 2006Q3

REPORT INFORMATION
  Report Type: 
  Country: None (occurrence: None)
  Receive Date: 20060912
  Receipt Date: 20060829
  Transmission Date: 20061208
  Serious: Yes (Other)
  Sender: FDA-Public Use
  Company Number: NLWYE808130AUG06

PATIENT
  Sex: Female

DRUGS (1)
  1. ENBREL [Suspect]
     Indication: PSORIASIS
     Dates: start: 20060601

REACTIONS (2)
  - SYSTEMIC LUPUS ERYTHEMATOSUS [None]
  - SYSTEMIC LUPUS ERYTHEMATOSUS RASH [None]
